FAERS Safety Report 18117201 (Version 2)
Quarter: 2020Q3

REPORT INFORMATION
  Report Type: Spontaneous
  Country: US (occurrence: US)
  Receive Date: 20200806
  Receipt Date: 20200814
  Transmission Date: 20201103
  Serious: Yes (Hospitalization)
  Sender: FDA-Public Use
  Company Number: US-TEVA-2020-US-1810008

PATIENT
  Age: 55 Year
  Sex: Female

DRUGS (1)
  1. DESOXIMETASONE. [Suspect]
     Active Substance: DESOXIMETASONE
     Indication: ECZEMA
     Dosage: SHE REPORTED THAT SHE HAD BEEN APPLYING 0.25% DESOXIMETASONE CREAM TWO TIMES DAILY OVER HER WHOLE...
     Route: 061

REACTIONS (6)
  - Mental status changes [Recovering/Resolving]
  - Secondary adrenocortical insufficiency [Recovering/Resolving]
  - Hypoglycaemia [Recovered/Resolved]
  - Encephalopathy [Recovering/Resolving]
  - Hypotension [Recovered/Resolved]
  - Stress cardiomyopathy [Recovering/Resolving]
